FAERS Safety Report 5479914-X (Version None)
Quarter: 2007Q4

REPORT INFORMATION
  Report Type: 
  Country: None (occurrence: None)
  Receive Date: 20071008
  Receipt Date: 20070924
  Transmission Date: 20080405
  Serious: No
  Sender: FDA-Public Use
  Company Number: US-BOEHRINGER INGELHEIM PHARMACEUTICALS, INC.-2007-BP-21588BP

PATIENT
  Age: 66 Year
  Sex: Male

DRUGS (1)
  1. FLOMAX [Suspect]
     Indication: BENIGN PROSTATIC HYPERPLASIA
     Route: 048
     Dates: start: 20070701

REACTIONS (4)
  - ARTHRALGIA [None]
  - HEADACHE [None]
  - LIMB DISCOMFORT [None]
  - PAIN IN EXTREMITY [None]
